FAERS Safety Report 10455488 (Version 2)
Quarter: 2015Q1

REPORT INFORMATION
  Report Type: Report from Study
  Country: US (occurrence: US)
  Receive Date: 20140916
  Receipt Date: 20150105
  Transmission Date: 20150720
  Serious: Yes (Hospitalization)
  Sender: FDA-Public Use
  Company Number: US-ROCHE-1462254

PATIENT
  Age: 64 Year
  Sex: Male
  Weight: 57.73 kg

DRUGS (7)
  1. TRASTUZUMAB [Suspect]
     Active Substance: TRASTUZUMAB
     Indication: OESOPHAGEAL ADENOCARCINOMA
     Dosage: OVER 90 MIN, DATE OF MOST RECENT DOSE : 18/MAR/2014
     Route: 042
     Dates: start: 20131216
  2. TRASTUZUMAB [Suspect]
     Active Substance: TRASTUZUMAB
     Dosage: OVER 30-60 MIN
     Route: 042
  3. TRASTUZUMAB [Suspect]
     Active Substance: TRASTUZUMAB
     Dosage: OVER 30-90 MIN
     Route: 042
  4. PACLITAXEL. [Suspect]
     Active Substance: PACLITAXEL
     Indication: OESOPHAGEAL ADENOCARCINOMA
     Dosage: OVER 1 HOUR, DATE OF MOST RECENT DOSE: 20/JAN/2014
     Route: 042
     Dates: start: 20131216
  5. CARBOPLATIN. [Suspect]
     Active Substance: CARBOPLATIN
     Indication: OESOPHAGEAL ADENOCARCINOMA
     Dosage: AUC= 2 OVER 1 HOUR, DATE OF MOST RECENT DOSE: 20/JAN/2014
     Route: 042
     Dates: start: 20131216
  6. TRASTUZUMAB [Suspect]
     Active Substance: TRASTUZUMAB
     Dosage: MAINTENANCE THERAPY; 30-90 MIN ON DAY 1 (BEGINNING 21-56 DAYS AFTER SURGERY)
     Route: 042
  7. TRASTUZUMAB [Suspect]
     Active Substance: TRASTUZUMAB
     Dosage: DATE OF MOST RECENT DOSE 05/JUN/2014
     Route: 042

REACTIONS (2)
  - Small intestinal obstruction [Recovering/Resolving]
  - Small intestinal obstruction [Recovered/Resolved]

NARRATIVE: CASE EVENT DATE: 20140330
